FAERS Safety Report 14597968 (Version 2)
Quarter: 2018Q1

REPORT INFORMATION
  Report Type: Spontaneous
  Country: US (occurrence: US)
  Receive Date: 20180305
  Receipt Date: 20180308
  Transmission Date: 20180509
  Serious: Yes (Other)
  Sender: FDA-Public Use
  Company Number: US-PFIZER INC-2018087108

PATIENT
  Sex: Female

DRUGS (2)
  1. LYRICA [Suspect]
     Active Substance: PREGABALIN
     Dosage: 1 DF, 1X/DAY (ONE DOSE AT NIGHT)
  2. LORAZEPAM. [Concomitant]
     Active Substance: LORAZEPAM
     Dosage: UNK

REACTIONS (15)
  - Oropharyngeal pain [Unknown]
  - Asthenia [Unknown]
  - Confusional state [Unknown]
  - Muscle spasms [Unknown]
  - Mood altered [Unknown]
  - Dyspnoea [Unknown]
  - Weight increased [Not Recovered/Not Resolved]
  - Dizziness [Unknown]
  - Dry mouth [Unknown]
  - Change of bowel habit [Unknown]
  - Memory impairment [Unknown]
  - Deafness [Unknown]
  - Myalgia [Unknown]
  - Disturbance in attention [Unknown]
  - Fatigue [Unknown]
